FAERS Safety Report 6616778-2 (Version None)
Quarter: 2010Q1

REPORT INFORMATION
  Report Type: 
  Country: None (occurrence: None)
  Receive Date: 20100301
  Receipt Date: 20100222
  Transmission Date: 20100710
  Serious: Yes (Hospitalization, Other)
  Sender: FDA-Public Use
  Company Number: FABR-1000995

PATIENT
  Age: 50 Year
  Sex: Male
  Weight: 56.8 kg

DRUGS (1)
  1. FABRAZYME [Suspect]
     Indication: FABRY'S DISEASE
     Dosage: 55 MG, Q2W, INTRAVENOUS
     Route: 042
     Dates: start: 20050601

REACTIONS (3)
  - PERITONEAL DIALYSIS [None]
  - RENAL NEOPLASM [None]
  - SHUNT OCCLUSION [None]
